FAERS Safety Report 6582835-2 (Version None)
Quarter: 2010Q1

REPORT INFORMATION
  Report Type: 
  Country: None (occurrence: None)
  Receive Date: 20100216
  Receipt Date: 20090929
  Transmission Date: 20100710
  Serious: Yes (Other)
  Sender: FDA-Public Use
  Company Number: US-SANOFI-AVENTIS-A03200903866

PATIENT
  Age: 72 Year
  Sex: Male
  Weight: 73.9 kg

DRUGS (7)
  1. DRONEDARONE [Suspect]
     Dosage: UNIT DOSE: 400 MG
     Route: 048
     Dates: start: 20090804, end: 20090808
  2. DRONEDARONE [Suspect]
     Indication: LEFT VENTRICULAR DYSFUNCTION
     Dosage: UNIT DOSE: 400 MG
     Route: 048
     Dates: start: 20090804, end: 20090808
  3. LASIX [Suspect]
     Dosage: DOSE TEXT: VARIOUS
     Route: 065
  4. CARVEDILOL [Concomitant]
     Dosage: UNIT DOSE: 3.125 MG
     Route: 065
  5. GLIPIZIDE [Concomitant]
     Dosage: UNIT DOSE: 10 MG
     Route: 065
  6. TAMSULOSIN HYDROCHLORIDE [Concomitant]
     Indication: BENIGN PROSTATIC HYPERPLASIA
     Dosage: UNIT DOSE: .4 MG
     Route: 065
  7. ZOCOR [Concomitant]
     Indication: CORONARY ARTERY DISEASE
     Dosage: UNIT DOSE: 80 MG
     Route: 065

REACTIONS (2)
  - BLOOD CREATININE INCREASED [None]
  - OFF LABEL USE [None]
